FAERS Safety Report 15298581 (Version 1)
Quarter: 2018Q3

REPORT INFORMATION
  Report Type: Spontaneous
  Country: FR (occurrence: FR)
  Receive Date: 20180820
  Receipt Date: 20180820
  Transmission Date: 20181010
  Serious: Yes (Hospitalization)
  Sender: FDA-Public Use
  Company Number: FR-MUNDIPHARMA DS AND PHARMACOVIGILANCE-GBR-2016-0039563

PATIENT
  Age: 80 Year
  Sex: Male

DRUGS (21)
  1. ENDOXAN                            /00021101/ [Concomitant]
     Active Substance: CYCLOPHOSPHAMIDE
     Indication: NEOPLASM MALIGNANT
     Dosage: 5?0?0, 3 DAYS PER MONTH
     Dates: start: 20160518
  2. GELOX [Concomitant]
     Active Substance: ALUMINUM HYDROXIDE\MAGNESIUM HYDROXIDE\MONTMORILLONITE
     Indication: NEOPLASM MALIGNANT
     Dosage: 1?1?1, 5 DAYS PER MONTH
  3. XANAX [Concomitant]
     Active Substance: ALPRAZOLAM
     Dosage: 1 DF, DAILY
  4. OXYNORM 10 MG, GELULE [Suspect]
     Active Substance: OXYCODONE HYDROCHLORIDE
     Indication: PAIN
     Dosage: EVERY 4 HOURS IF PAINFUL
     Route: 048
     Dates: start: 20160524, end: 20160527
  5. DUROGESIC [Suspect]
     Active Substance: FENTANYL
     Dosage: 1 DF, Q72H (DUROGESIC 25MCG/H)
     Route: 062
  6. CELLTOP [Concomitant]
     Active Substance: ETOPOSIDE
     Indication: NEOPLASM MALIGNANT
     Dosage: 0?3?0, 3 DAYS PER MONTH
     Dates: start: 20160518
  7. CORTANCYL [Concomitant]
     Active Substance: PREDNISONE
     Indication: NEOPLASM MALIGNANT
     Dosage: 1?1?0, 5 DAYS PER MONTH
  8. BECOTIDE [Concomitant]
     Active Substance: BECLOMETHASONE DIPROPIONATE
     Dosage: 2 DF, BID
  9. PRIMPERAN [Concomitant]
     Active Substance: METOCLOPRAMIDE HYDROCHLORIDE
     Indication: NEOPLASM MALIGNANT
     Dosage: 1?1?1, 5 DAYS PER MONTH
  10. APROVEL [Concomitant]
     Active Substance: IRBESARTAN
     Dosage: 1 DF, DAILY
  11. ZYLORIC [Concomitant]
     Active Substance: ALLOPURINOL
     Indication: NEOPLASM MALIGNANT
     Dosage: 1?0?0, 5 DAYS PER MONTH
  12. POTASSIUM [Concomitant]
     Active Substance: POTASSIUM
     Indication: NEOPLASM MALIGNANT
     Dosage: 1?0?1, 5 DAYS PER MONTH
  13. FORLAX                             /00754501/ [Concomitant]
     Active Substance: POLYETHYLENE GLYCOL 4000
     Indication: NEOPLASM MALIGNANT
     Dosage: 1 SACHET, DAILY
     Dates: end: 20160619
  14. FUROSEMIDE. [Concomitant]
     Active Substance: FUROSEMIDE
     Dosage: 1 DF, DAILY
  15. DUROGESIC [Suspect]
     Active Substance: FENTANYL
     Indication: PAIN
     Dosage: 1 DF, Q72H (DUROGESIC 50MCG/H)
     Route: 062
     Dates: start: 20160524, end: 201605
  16. SIMVASTATINE [Concomitant]
     Active Substance: SIMVASTATIN
  17. LERCANIDIPINE [Concomitant]
     Active Substance: LERCANIDIPINE
     Dosage: 1 DF, DAILY
  18. MECIR [Concomitant]
     Active Substance: TAMSULOSIN HYDROCHLORIDE
     Dosage: 1 DF, DAILY
  19. LAROXYL [Concomitant]
     Active Substance: AMITRIPTYLINE HYDROCHLORIDE
     Dosage: 10 DROP, PM
  20. EPINITRIL [Concomitant]
     Active Substance: NITROGLYCERIN
     Dosage: 1 DF, DAILY
  21. PARIET [Concomitant]
     Active Substance: RABEPRAZOLE SODIUM
     Dosage: 1 DF, DAILY

REACTIONS (3)
  - Blood creatinine increased [Recovering/Resolving]
  - Confusional state [Recovered/Resolved]
  - Urinary retention [Recovered/Resolved]

NARRATIVE: CASE EVENT DATE: 20160526
